FAERS Safety Report 20081050 (Version 1)
Quarter: 2021Q4

REPORT INFORMATION
  Report Type: Report from Study
  Country: US (occurrence: US)
  Receive Date: 20211117
  Receipt Date: 20211117
  Transmission Date: 20220303
  Serious: Yes (Death, Other)
  Sender: FDA-Public Use
  Company Number: US-TAKEDA-US201608526

PATIENT
  Sex: Female

DRUGS (2)
  1. LANTHANUM CARBONATE [Suspect]
     Active Substance: LANTHANUM CARBONATE
     Indication: End stage renal disease
     Dosage: 1000 MILLIGRAM, TID
     Route: 048
     Dates: start: 20160516
  2. LANTHANUM CARBONATE [Suspect]
     Active Substance: LANTHANUM CARBONATE
     Dosage: 2 DOSAGE FORM, BID
     Route: 048
     Dates: start: 20201028

REACTIONS (5)
  - Death [Fatal]
  - Blood test abnormal [Unknown]
  - Incorrect dose administered [Recovered/Resolved]
  - Drug ineffective [Unknown]
  - Overdose [Unknown]

NARRATIVE: CASE EVENT DATE: 20160101
